FAERS Safety Report 16983529 (Version 1)
Quarter: 2019Q4

REPORT INFORMATION
  Report Type: Not Available
  Country: US (occurrence: US)
  Receive Date: 20191101
  Receipt Date: 20191101
  Transmission Date: 20200122
  Serious: No
  Sender: FDA-Public Use
  Company Number: US-NEUROCRINE BIOSCIENCES INC.-2019NBI03150

PATIENT
  Sex: Female

DRUGS (10)
  1. ASA [Concomitant]
     Active Substance: ASPIRIN
  2. INGREZZA [Suspect]
     Active Substance: VALBENAZINE
     Indication: TARDIVE DYSKINESIA
     Route: 048
     Dates: start: 201709
  3. PROZAC [Concomitant]
     Active Substance: FLUOXETINE HYDROCHLORIDE
  4. GLIPIZIDE. [Concomitant]
     Active Substance: GLIPIZIDE
  5. INVOKANA [Concomitant]
     Active Substance: CANAGLIFLOZIN
  6. METHIMAZOLE. [Concomitant]
     Active Substance: METHIMAZOLE
  7. LISINOPRIL. [Concomitant]
     Active Substance: LISINOPRIL
  8. TRAZODONE [Concomitant]
     Active Substance: TRAZODONE HYDROCHLORIDE
  9. ATORVASTATIN [Concomitant]
     Active Substance: ATORVASTATIN
  10. OMEPRAZOLE. [Concomitant]
     Active Substance: OMEPRAZOLE

REACTIONS (1)
  - Therapeutic product effect incomplete [None]
